FAERS Safety Report 4744985-2 (Version None)
Quarter: 2005Q3

REPORT INFORMATION
  Report Type: 
  Country: None (occurrence: None)
  Receive Date: 20050815
  Receipt Date: 20050805
  Transmission Date: 20060218
  Serious: Yes (Death, Life-Threatening)
  Sender: FDA-Public Use
  Company Number: US-MERCK-0508USA01533

PATIENT
  Age: 11 Year
  Sex: Female

DRUGS (4)
  1. COSMEGEN [Suspect]
     Indication: NEPHROBLASTOMA
     Route: 051
  2. VINCRISTINE SULFATE [Concomitant]
     Indication: NEPHROBLASTOMA
     Route: 065
  3. DOXORUBICIN [Concomitant]
     Indication: NEPHROBLASTOMA
     Route: 065
  4. CYCLOPHOSPHAMIDE [Concomitant]
     Indication: NEPHROBLASTOMA
     Route: 065

REACTIONS (4)
  - CARDIAC ARREST [None]
  - DRUG INEFFECTIVE [None]
  - LEUKAEMIA [None]
  - MYELODYSPLASTIC SYNDROME [None]
